FAERS Safety Report 8861576 (Version 1)
Quarter: 2012Q4

REPORT INFORMATION
  Report Type: 
  Country: US (occurrence: US)
  Receive Date: 20121025
  Receipt Date: 20121025
  Transmission Date: 20130627
  Serious: No
  Sender: FDA-Public Use
  Company Number: US-AMGEN-USASP2012017174

PATIENT
  Age: 52 Year
  Sex: Male

DRUGS (2)
  1. ENBREL [Suspect]
     Indication: PSORIASIS
     Dosage: 50 mg, 2 times/wk
     Dates: start: 20110801, end: 201112
  2. ENBREL [Suspect]
     Indication: OSTEOARTHRITIS

REACTIONS (4)
  - Paranasal sinus hypersecretion [Recovered/Resolved]
  - Dizziness [Recovered/Resolved]
  - Blepharospasm [Recovered/Resolved]
  - Psoriasis [Not Recovered/Not Resolved]
